FAERS Safety Report 5375856-9 (Version None)
Quarter: 2007Q2

REPORT INFORMATION
  Report Type: 
  Country: None (occurrence: None)
  Receive Date: 20070627
  Receipt Date: 20070627
  Transmission Date: 20071010
  Serious: Yes (Hospitalization)
  Sender: FDA-Public Use
  Company Number: None

PATIENT
  Age: 20 Year
  Sex: Male

DRUGS (3)
  1. CELEXA [Suspect]
     Indication: ANXIETY DISORDER
     Dosage: 40 MG DAILY PO
     Route: 048
     Dates: start: 20070216, end: 20070301
  2. CELEXA [Suspect]
     Indication: MAJOR DEPRESSION
     Dosage: 40 MG DAILY PO
     Route: 048
     Dates: start: 20070216, end: 20070301
  3. .. [Concomitant]

REACTIONS (8)
  - ALCOHOL USE [None]
  - BALANCE DISORDER [None]
  - CONFUSIONAL STATE [None]
  - GRAND MAL CONVULSION [None]
  - INTENTIONAL OVERDOSE [None]
  - RESPIRATORY ARREST [None]
  - SEROTONIN SYNDROME [None]
  - VOMITING [None]
